FAERS Safety Report 21297633 (Version 1)
Quarter: 2022Q3

REPORT INFORMATION
  Report Type: Report from Study
  Country: IT (occurrence: IT)
  Receive Date: 20220906
  Receipt Date: 20220906
  Transmission Date: 20221026
  Serious: Yes (Other)
  Sender: FDA-Public Use
  Company Number: None

PATIENT
  Age: 17 Year
  Sex: Female

DRUGS (4)
  1. FEVARIN [Suspect]
     Active Substance: FLUVOXAMINE MALEATE
     Indication: Affective disorder
     Dosage: 900 MILLIGRAM, 900 MG / TOTAL
     Route: 048
     Dates: start: 20220610
  2. MELATONIN [Concomitant]
     Active Substance: MELATONIN
     Indication: Circadian rhythm sleep disorder
     Dosage: 6 MILLIGRAM, QD, 6MG/DAY
     Route: 048
     Dates: start: 20220101
  3. Tavor [Concomitant]
     Indication: Circadian rhythm sleep disorder
     Dosage: 5 + 5 + 6 DROPS/ DAY
     Route: 048
     Dates: start: 20220101
  4. LURASIDONE [Concomitant]
     Active Substance: LURASIDONE
     Indication: Obsessive-compulsive disorder
     Dosage: 74 MG / DAY
     Route: 048
     Dates: start: 20220304

REACTIONS (3)
  - Drug abuse [Recovering/Resolving]
  - Mood altered [Recovering/Resolving]
  - Vomiting [Recovering/Resolving]

NARRATIVE: CASE EVENT DATE: 20220610
